FAERS Safety Report 10149469 (Version 1)
Quarter: 2014Q2

REPORT INFORMATION
  Report Type: Spontaneous
  Country: US (occurrence: None)
  Receive Date: 20140501
  Receipt Date: 20140501
  Transmission Date: 20141212
  Serious: Yes (Hospitalization)
  Sender: FDA-Public Use
  Company Number: None

PATIENT
  Age: 59 Year
  Sex: Male
  Weight: 153.4 kg

DRUGS (1)
  1. LISINOPRIL [Suspect]
     Indication: HYPERTENSION
     Route: 048
     Dates: start: 20020617, end: 20131216

REACTIONS (6)
  - Angioedema [None]
  - Lip swelling [None]
  - Pharyngeal oedema [None]
  - Oedema mouth [None]
  - Swelling face [None]
  - Acute respiratory failure [None]
